FAERS Safety Report 8281715-4 (Version None)
Quarter: 2012Q2

REPORT INFORMATION
  Report Type: 
  Country: None (occurrence: None)
  Receive Date: 20120413
  Receipt Date: 20120405
  Transmission Date: 20120825
  Serious: No
  Sender: FDA-Public Use
  Company Number: US-PFIZER INC-2012087482

PATIENT

DRUGS (1)
  1. AZITHROMYCIN [Suspect]
     Dosage: UNK
     Route: 048

REACTIONS (1)
  - MALAISE [None]
